FAERS Safety Report 9765892 (Version 1)
Quarter: 2013Q4

REPORT INFORMATION
  Report Type: Spontaneous
  Country: US (occurrence: US)
  Receive Date: 20131217
  Receipt Date: 20131217
  Transmission Date: 20140711
  Serious: No
  Sender: FDA-Public Use
  Company Number: US-GLAXOSMITHKLINE-A1013066A

PATIENT
  Age: 58 Year
  Sex: Male

DRUGS (10)
  1. VOTRIENT [Suspect]
     Indication: PRODUCT USED FOR UNKNOWN INDICATION
     Dosage: 200MG SEE DOSAGE TEXT
     Route: 048
     Dates: start: 20130125
  2. LEVOTHYROXIN [Concomitant]
  3. LOSARTAN POTASSIUM [Concomitant]
  4. HYDROXYUREA [Concomitant]
  5. ASA, LOW DOSE [Concomitant]
  6. MULTIVITAMIN [Concomitant]
  7. VITAMIN D [Concomitant]
  8. FISH OIL [Concomitant]
  9. VITAMIN C [Concomitant]
  10. MAGNESIUM [Concomitant]

REACTIONS (7)
  - Fatigue [Unknown]
  - Epistaxis [Not Recovered/Not Resolved]
  - Nausea [Unknown]
  - Flatulence [Unknown]
  - Vomiting [Recovered/Resolved]
  - Headache [Not Recovered/Not Resolved]
  - Diarrhoea [Recovering/Resolving]
